FAERS Safety Report 7973110-X (Version None)
Quarter: 2011Q4

REPORT INFORMATION
  Report Type: 
  Country: None (occurrence: None)
  Receive Date: 20111213
  Receipt Date: 20111207
  Transmission Date: 20120403
  Serious: Yes (Death)
  Sender: FDA-Public Use
  Company Number: US-ASTELLAS-2011JP009095

PATIENT

DRUGS (3)
  1. ANTI-HIV-1 DRUG [Concomitant]
     Indication: HIV TEST POSITIVE
     Route: 065
  2. TACROLIMUS [Suspect]
     Indication: IMMUNOSUPPRESSION
     Route: 065
  3. INTERFERON [Concomitant]
     Route: 065

REACTIONS (1)
  - SEPSIS [None]
